FAERS Safety Report 21925804 (Version 2)
Quarter: 2023Q2

REPORT INFORMATION
  Report Type: Spontaneous
  Country: US (occurrence: US)
  Receive Date: 20230130
  Receipt Date: 20230602
  Transmission Date: 20230721
  Serious: No
  Sender: FDA-Public Use
  Company Number: US-LEO Pharma-348743

PATIENT
  Sex: Male

DRUGS (8)
  1. ADBRY [Suspect]
     Active Substance: TRALOKINUMAB-LDRM
     Indication: Dermatitis atopic
     Dosage: DOSAGE: 4 INJECTIONS (600 MG) FOR THE INITIAL DOSE
     Route: 058
     Dates: start: 202210
  2. ADBRY [Suspect]
     Active Substance: TRALOKINUMAB-LDRM
     Indication: Dermatitis atopic
     Dosage: DOSAGE: 4 INJECTIONS (600 MG) FOR THE INITIAL DOSE
     Route: 058
     Dates: start: 202210
  3. ADBRY [Suspect]
     Active Substance: TRALOKINUMAB-LDRM
     Indication: Dermatitis atopic
     Dosage: DOSAGE: 4 INJECTIONS (600 MG) FOR THE INITIAL DOSE
     Route: 058
     Dates: start: 202210
  4. ADBRY [Suspect]
     Active Substance: TRALOKINUMAB-LDRM
     Indication: Dermatitis atopic
     Dosage: DOSAGE: 4 INJECTIONS (600 MG) FOR THE INITIAL DOSE
     Route: 058
     Dates: start: 202210
  5. ADBRY [Suspect]
     Active Substance: TRALOKINUMAB-LDRM
     Indication: Dermatitis atopic
     Dosage: DOSAGE: 2 INJECTIONS (300 MG) EVERY TWO WEEKS SUBCUTANEOUSLY
     Route: 058
  6. ADBRY [Suspect]
     Active Substance: TRALOKINUMAB-LDRM
     Indication: Dermatitis atopic
     Dosage: DOSAGE: 2 INJECTIONS (300 MG) EVERY TWO WEEKS SUBCUTANEOUSLY
     Route: 058
  7. ADBRY [Suspect]
     Active Substance: TRALOKINUMAB-LDRM
     Indication: Dermatitis atopic
     Dosage: DOSAGE: 2 INJECTIONS (300 MG) EVERY TWO WEEKS SUBCUTANEOUSLY
     Route: 058
  8. ADBRY [Suspect]
     Active Substance: TRALOKINUMAB-LDRM
     Indication: Dermatitis atopic
     Dosage: DOSAGE: 2 INJECTIONS (300 MG) EVERY TWO WEEKS SUBCUTANEOUSLY
     Route: 058

REACTIONS (1)
  - Eczema [Unknown]
